FAERS Safety Report 6989768-8 (Version None)
Quarter: 2010Q3

REPORT INFORMATION
  Report Type: 
  Country: None (occurrence: None)
  Receive Date: 20100916
  Receipt Date: 20100219
  Transmission Date: 20110219
  Serious: Yes (Other)
  Sender: FDA-Public Use
  Company Number: KR-PFIZER INC-2010017196

PATIENT
  Age: 65 Year
  Sex: Female

DRUGS (2)
  1. LYRICA [Suspect]
     Indication: NEURALGIA
     Dosage: 75 MG, 1X/DAY, AT BEDTIME
     Route: 048
  2. LYRICA [Suspect]
     Dosage: 75 MG, 2X/DAY, IN THE MORNING AND EVENING
     Route: 048

REACTIONS (1)
  - MUSCLE SPASMS [None]
